FAERS Safety Report 18348715 (Version 2)
Quarter: 2020Q4

REPORT INFORMATION
  Report Type: Other
  Country: US (occurrence: US)
  Receive Date: 20201006
  Receipt Date: 20201022
  Transmission Date: 20210114
  Serious: Yes (Hospitalization, Other)
  Sender: FDA-Public Use
  Company Number: US-AMAG PHARMACEUTICALS, INC.-AMAG202003251

PATIENT
  Age: 22 Year
  Sex: Female
  Weight: 103.06 kg

DRUGS (5)
  1. LEVEMIR [Concomitant]
     Active Substance: INSULIN DETEMIR
     Indication: PRODUCT USED FOR UNKNOWN INDICATION
  2. ZOFRAN [Concomitant]
     Active Substance: ONDANSETRON HYDROCHLORIDE
     Indication: PRODUCT USED FOR UNKNOWN INDICATION
     Route: 048
     Dates: start: 20200713
  3. MAKENA [Suspect]
     Active Substance: HYDROXYPROGESTERONE CAPROATE
     Indication: PREMATURE DELIVERY
     Dosage: 250 MG/ML, WEEKLY
     Route: 058
     Dates: start: 20200409, end: 20200903
  4. INSULIN FLEX TOUCH [Concomitant]
     Indication: PRODUCT USED FOR UNKNOWN INDICATION
     Route: 058
  5. VITAFOL ULTRA [Concomitant]
     Active Substance: .ALPHA.-TOCOPHEROL ACETATE, DL-\.BETA.-CAROTENE\ASCORBIC ACID\CHOLECALCIFEROL\CUPRIC OXIDE\CYANOCOBALAMIN\DOCONEXENT\FOLIC ACID\IRON\LEVOMEFOLATE CALCIUM\MAGNESIUM OXIDE\NIACINAMIDE\POTASSIUM IODIDE\PYRIDOXINE HYDROCHLORIDE\RIBOFLAVIN\THIAMINE MONONITRATE\ZINC OXIDE
     Indication: PRODUCT USED FOR UNKNOWN INDICATION
     Route: 048
     Dates: start: 20200221

REACTIONS (5)
  - Chorioamniotic separation [Unknown]
  - Polyhydramnios [Unknown]
  - Diabetes mellitus [Unknown]
  - Premature delivery [Recovered/Resolved]
  - Central obesity [Unknown]

NARRATIVE: CASE EVENT DATE: 20200912
